FAERS Safety Report 17194112 (Version 1)
Quarter: 2019Q4

REPORT INFORMATION
  Report Type: Report from Study
  Country: US (occurrence: US)
  Receive Date: 20191224
  Receipt Date: 20191224
  Transmission Date: 20200122
  Serious: Yes (Death, Hospitalization)
  Sender: FDA-Public Use
  Company Number: US-ZYDUS-044953

PATIENT
  Age: 63 Year
  Sex: Male

DRUGS (4)
  1. METAMFETAMINE [Suspect]
     Active Substance: METHAMPHETAMINE
     Indication: PRODUCT USED FOR UNKNOWN INDICATION
     Route: 065
  2. FENTANYL/FENTANYL CITRATE [Suspect]
     Active Substance: FENTANYL
     Indication: PRODUCT USED FOR UNKNOWN INDICATION
     Route: 065
  3. DEXTROAMPHETAMINE. [Suspect]
     Active Substance: DEXTROAMPHETAMINE
     Indication: PRODUCT USED FOR UNKNOWN INDICATION
     Route: 065
  4. COCAINE/COCAINE HYDROCHLORIDE [Suspect]
     Active Substance: COCAINE HYDROCHLORIDE
     Indication: PRODUCT USED FOR UNKNOWN INDICATION
     Route: 065

REACTIONS (13)
  - Myocardial ischaemia [Unknown]
  - Arrhythmia [Unknown]
  - Toxicity to various agents [Fatal]
  - Hypotension [Unknown]
  - Anion gap [Unknown]
  - Acute kidney injury [Unknown]
  - Rhabdomyolysis [Unknown]
  - Osmolar gap [Unknown]
  - Hepatotoxicity [Unknown]
  - Metabolic acidosis [Unknown]
  - Tachycardia [Unknown]
  - Nervous system disorder [Unknown]
  - Acute lung injury [Unknown]
